FAERS Safety Report 23367337 (Version 1)
Quarter: 2024Q1

REPORT INFORMATION
  Report Type: Spontaneous
  Country: US (occurrence: None)
  Receive Date: 20240104
  Receipt Date: 20240104
  Transmission Date: 20240409
  Serious: No
  Sender: FDA-Public Use
  Company Number: None

PATIENT
  Age: 67 Year
  Sex: Male

DRUGS (1)
  1. KRYSTEXXA [Suspect]
     Active Substance: PEGLOTICASE
     Indication: Gout
     Dosage: INFUSE 8MG INTRAVENOUSLY EVERY 2 WEEKS AS DIRECTED.
     Route: 042
     Dates: start: 202303

REACTIONS (2)
  - Cardiac disorder [None]
  - Lung disorder [None]
